FAERS Safety Report 25936814 (Version 5)
Quarter: 2025Q4

REPORT INFORMATION
  Report Type: Spontaneous
  Country: US (occurrence: US)
  Receive Date: 20251017
  Receipt Date: 20251119
  Transmission Date: 20260117
  Serious: Yes (Other)
  Sender: PFIZER
  Company Number: US-PFIZER INC-PV202400007724

PATIENT
  Age: 74 Year
  Sex: Female

DRUGS (1)
  1. PREMARIN [Suspect]
     Active Substance: ESTROGENS, CONJUGATED
     Dosage: ONCE OR TWICE A MONTH (2 TUBES PER YEAR)

REACTIONS (3)
  - Deafness [Unknown]
  - Hypoacusis [Not Recovered/Not Resolved]
  - Off label use [Unknown]
